FAERS Safety Report 9375470 (Version 1)
Quarter: 2013Q2

REPORT INFORMATION
  Report Type: Report from Study
  Country: ES (occurrence: ES)
  Receive Date: 20130628
  Receipt Date: 20130628
  Transmission Date: 20140414
  Serious: Yes (Disabling)
  Sender: FDA-Public Use
  Company Number: ES-GLAXOSMITHKLINE-B0903589A

PATIENT
  Age: 67 Year
  Sex: Male

DRUGS (4)
  1. VOTRIENT [Suspect]
     Indication: CLEAR CELL RENAL CELL CARCINOMA
     Dosage: 800MG PER DAY
     Route: 065
     Dates: start: 201202
  2. METFORMIN [Concomitant]
     Dosage: 850MG THREE TIMES PER DAY
  3. LOSARTAN [Concomitant]
     Dosage: 50MG PER DAY
  4. ACETYLSALICYLIC ACID [Concomitant]
     Dosage: 100MG PER DAY

REACTIONS (14)
  - Renal failure [Unknown]
  - Gastrointestinal toxicity [Unknown]
  - Gout [Unknown]
  - Asthenia [Unknown]
  - Arthritis [Unknown]
  - Diarrhoea [Unknown]
  - Vomiting [Not Recovered/Not Resolved]
  - Abdominal pain [Not Recovered/Not Resolved]
  - Palmar-plantar erythrodysaesthesia syndrome [Unknown]
  - Muscle spasms [Unknown]
  - Hypertriglyceridaemia [Unknown]
  - Hypothyroidism [Unknown]
  - Nausea [Not Recovered/Not Resolved]
  - Toxicity to various agents [Unknown]
